FAERS Safety Report 4911627-2 (Version None)
Quarter: 2006Q1

REPORT INFORMATION
  Report Type: 
  Country: None (occurrence: None)
  Receive Date: 20060213
  Receipt Date: 20060131
  Transmission Date: 20060701
  Serious: Yes (Other)
  Sender: FDA-Public Use
  Company Number: HQWYE612601FEB06

PATIENT
  Age: 44 Year
  Sex: Female
  Weight: 60.38 kg

DRUGS (6)
  1. PHENERGAN [Suspect]
     Dates: start: 20051001, end: 20051001
  2. AMBIEN [Suspect]
     Dates: start: 20051001, end: 20051001
  3. PEG-INTRON [Suspect]
     Indication: HEPATITIS C
     Dosage: OVERDOSE AMOUNT, ^3 DOSES^ AT ONCE
     Dates: start: 20051001, end: 20051001
  4. RIBAVIRIN [Suspect]
     Indication: HEPATITIS C
     Dosage: ORAL
     Route: 048
     Dates: start: 20051001, end: 20051001
  5. COREG [Concomitant]
  6. NEXIUM [Concomitant]

REACTIONS (10)
  - ACCIDENTAL OVERDOSE [None]
  - BLOOD POTASSIUM DECREASED [None]
  - BLOOD SODIUM DECREASED [None]
  - DEHYDRATION [None]
  - DISORIENTATION [None]
  - HALLUCINATIONS, MIXED [None]
  - INSOMNIA [None]
  - MUSCLE SPASMS [None]
  - VOMITING [None]
  - WEIGHT DECREASED [None]
